FAERS Safety Report 17655302 (Version 1)
Quarter: 2020Q2

REPORT INFORMATION
  Report Type: Spontaneous
  Country: US (occurrence: US)
  Receive Date: 20200409
  Receipt Date: 20200409
  Transmission Date: 20200713
  Serious: No
  Sender: FDA-Public Use
  Company Number: None

PATIENT
  Age: 57 Year
  Sex: Female
  Weight: 58.5 kg

DRUGS (1)
  1. CHOLESTYRAMINE. [Suspect]
     Active Substance: CHOLESTYRAMINE
     Dosage: ?          QUANTITY:1 PACKET;?
     Route: 048
     Dates: start: 20200408, end: 20200408

REACTIONS (4)
  - Product physical issue [None]
  - Product substitution issue [None]
  - Product solubility abnormal [None]
  - Throat irritation [None]

NARRATIVE: CASE EVENT DATE: 20200408
